FAERS Safety Report 5108032-5 (Version None)
Quarter: 2006Q3

REPORT INFORMATION
  Report Type: 
  Country: None (occurrence: None)
  Receive Date: 20060914
  Receipt Date: 20060904
  Transmission Date: 20061208
  Serious: Yes (Death, Other)
  Sender: FDA-Public Use
  Company Number: 2006108920

PATIENT
  Age: 76 Year
  Sex: Male

DRUGS (4)
  1. LYRICA [Suspect]
     Indication: NEURALGIA
     Dosage: 150 MG (75 MG, 2 IN 1 D)
  2. OXYCODONE HCL [Suspect]
     Indication: DRUG USE FOR UNKNOWN INDICATION
  3. CORTICOSTEROIDS (CORTICOSTEROIDS) [Concomitant]
  4. AMIODARONE (AMIODARONE) [Concomitant]

REACTIONS (3)
  - CONFUSIONAL STATE [None]
  - NEURALGIA [None]
  - POST PROCEDURAL COMPLICATION [None]
